FAERS Safety Report 6733467-4 (Version None)
Quarter: 2010Q2

REPORT INFORMATION
  Report Type: 
  Country: None (occurrence: None)
  Receive Date: 20100520
  Receipt Date: 20100506
  Transmission Date: 20101027
  Serious: Yes (Other)
  Sender: FDA-Public Use
  Company Number: PHHY2010US25689

PATIENT
  Sex: Female

DRUGS (19)
  1. RECLAST [Suspect]
     Indication: OSTEOPOROSIS
     Dosage: UNK
     Dates: start: 20100402
  2. RECLAST [Suspect]
     Indication: PAIN
     Dosage: 7.5 MG, UNK
  3. RECLAST [Suspect]
     Dosage: 500 MG, UNK
  4. ACETAMINOPHEN [Concomitant]
  5. HYDROCODONE [Concomitant]
  6. BENADRYL [Concomitant]
  7. KLOR-CON [Concomitant]
     Dosage: ONE TABLET ONCE DAILY
  8. LISINOPRIL AND HYDROCHLOROTHIAZIDE [Concomitant]
     Dosage: 10 TO 12.5 MG ONCE A DAY
  9. PREMARIN [Concomitant]
     Dosage: 42.5 GM ONE APPLICATOR DAILY
  10. MULTI-VITAMINS [Concomitant]
     Dosage: ONE TABLET DAILY
  11. CARNATION CORNCAPS [Concomitant]
  12. CALCIUM W/MAGNESIUM/ZINC [Concomitant]
     Dosage: 1200 MG ONE TABLET DAILY
  13. VITAMIN C [Concomitant]
     Dosage: 1000 MG ONE TABLET DAILY
  14. VITAMIN B-12 [Concomitant]
     Dosage: 1000 UG, ONE TABLET ONCE DAY
  15. VITAMIN D3 [Concomitant]
     Dosage: 2000 UNIT ONE CAPSULE DAILY
  16. LOVAZA [Concomitant]
     Dosage: 1000 MG ONE TABLET DAILY
  17. ASPIRIN [Concomitant]
     Dosage: 81 MG ONCE DAILY
  18. COQ10 [Concomitant]
  19. GABAPENTIN [Concomitant]
     Dosage: 300 MG,ONE CAPSULE ONCE DAILY

REACTIONS (14)
  - BACK PAIN [None]
  - CHILLS [None]
  - COLD SWEAT [None]
  - FATIGUE [None]
  - MUSCULOSKELETAL CHEST PAIN [None]
  - MUSCULOSKELETAL PAIN [None]
  - MUSCULOSKELETAL STIFFNESS [None]
  - MYALGIA [None]
  - MYOSITIS [None]
  - NECK PAIN [None]
  - PAIN [None]
  - PAIN IN EXTREMITY [None]
  - PAIN IN JAW [None]
  - PRESYNCOPE [None]
